FAERS Safety Report 12077704 (Version 1)
Quarter: 2016Q1

REPORT INFORMATION
  Report Type: Spontaneous
  Country: MX (occurrence: MX)
  Receive Date: 20160215
  Receipt Date: 20160215
  Transmission Date: 20160526
  Serious: Yes (Hospitalization, Other)
  Sender: FDA-Public Use
  Company Number: MX-IPCA LABORATORIES LIMITED-IPC201602-000121

PATIENT
  Age: 23 Year
  Sex: Male

DRUGS (2)
  1. WARFARIN [Suspect]
     Active Substance: WARFARIN
  2. WARFARIN [Suspect]
     Active Substance: WARFARIN
     Indication: ANTICOAGULANT THERAPY

REACTIONS (5)
  - Epistaxis [Unknown]
  - Gastrointestinal haemorrhage [Not Recovered/Not Resolved]
  - Pericardial effusion [Unknown]
  - Haematuria [Not Recovered/Not Resolved]
  - Haemothorax [Unknown]
